FAERS Safety Report 9340740 (Version 1)
Quarter: 2013Q2

REPORT INFORMATION
  Report Type: Spontaneous
  Country: DE (occurrence: DE)
  Receive Date: 20130610
  Receipt Date: 20130610
  Transmission Date: 20140414
  Serious: Yes (Congenital Anomaly)
  Sender: FDA-Public Use
  Company Number: DE-GLAXOSMITHKLINE-D0080075A

PATIENT
  Age: 0 Day
  Sex: Male
  Weight: 3.8 kg

DRUGS (3)
  1. LAMOTRIGINE [Suspect]
     Indication: EPILEPSY
     Dosage: 300MG PER DAY
     Route: 064
     Dates: start: 20070403, end: 20080102
  2. FRISIUM [Suspect]
     Indication: EPILEPSY
     Dosage: 10MG PER DAY
     Route: 064
  3. FOLIC ACID [Concomitant]
     Indication: PROPHYLAXIS OF NEURAL TUBE DEFECT
     Dosage: 5MG PER DAY
     Route: 064
     Dates: start: 20070403, end: 20080102

REACTIONS (3)
  - Ventricular septal defect [Unknown]
  - Haemangioma congenital [Unknown]
  - Exposure during pregnancy [Unknown]
